FAERS Safety Report 7931136-6 (Version None)
Quarter: 2011Q4

REPORT INFORMATION
  Report Type: 
  Country: None (occurrence: None)
  Receive Date: 20111121
  Receipt Date: 20111115
  Transmission Date: 20120403
  Serious: Yes (Hospitalization)
  Sender: FDA-Public Use
  Company Number: IT-PFIZER INC-K201100479

PATIENT
  Sex: Male

DRUGS (10)
  1. ASPIRIN [Concomitant]
     Dosage: 1 DF, 1X/DAY
  2. ALDACTONE [Suspect]
     Indication: CARDIAC FAILURE
     Dosage: 1 DF, 1X/DAY
     Route: 048
     Dates: start: 20110321, end: 20110401
  3. POTASSIUM CHLORIDE [Suspect]
     Indication: CARDIAC FAILURE
     Dosage: 4 DF, 1X/DAY
     Route: 048
     Dates: start: 20110321, end: 20110401
  4. LASIX [Suspect]
     Indication: CARDIAC FAILURE
     Dosage: 3 DF, 1X/DAY
     Route: 048
     Dates: start: 20110321
  5. ALTACE [Suspect]
     Indication: CARDIAC FAILURE
     Dosage: 2 DF, 1X/DAY
     Route: 048
     Dates: start: 20110321, end: 20110401
  6. PANTOPRAZOLE SODIUM [Concomitant]
     Dosage: 40 MG, UNK
     Route: 048
  7. ALLOPURINOL [Concomitant]
     Dosage: 150 MG, 1X/DAY
  8. NORVASC [Suspect]
     Dosage: 1 DF, 1X/DAY
     Route: 048
     Dates: start: 20110321
  9. BISOPROLOL FUMARATE [Suspect]
     Indication: CARDIAC FAILURE
     Dosage: 2 DF, 1X/DAY
     Route: 048
     Dates: start: 20110321, end: 20110401
  10. PLAVIX [Concomitant]

REACTIONS (3)
  - SINUS BRADYCARDIA [None]
  - RENAL FAILURE ACUTE [None]
  - HYPERKALAEMIA [None]
